FAERS Safety Report 25257307 (Version 4)
Quarter: 2025Q3

REPORT INFORMATION
  Report Type: Report from Study
  Country: CA (occurrence: CA)
  Receive Date: 20250430
  Receipt Date: 20250826
  Transmission Date: 20251020
  Serious: Yes (Hospitalization)
  Sender: SPRINGWORKS THERAPEUTIC
  Company Number: CA-SPRINGWORKS THERAPEUTICS-SW-002648

PATIENT

DRUGS (2)
  1. NIROGACESTAT [Suspect]
     Active Substance: NIROGACESTAT
     Indication: Desmoid tumour
     Dosage: 150 MILLIGRAM, BID
     Route: 048
     Dates: start: 20250409, end: 20250415
  2. NIROGACESTAT [Suspect]
     Active Substance: NIROGACESTAT
     Dosage: 100 MILLIGRAM, BID
     Dates: start: 20250424

REACTIONS (2)
  - Diarrhoea [Recovered/Resolved]
  - Gastrointestinal toxicity [Unknown]

NARRATIVE: CASE EVENT DATE: 20250411
